FAERS Safety Report 8799832 (Version 2)
Quarter: 2012Q4

REPORT INFORMATION
  Report Type: Spontaneous
  Country: US (occurrence: None)
  Receive Date: 20120917
  Receipt Date: 20120924
  Transmission Date: 20130627
  Serious: Yes (Other)
  Sender: FDA-Public Use
  Company Number: DKLU1084492

PATIENT
  Age: 13 Month
  Sex: Female

DRUGS (4)
  1. SABRIL (TABLET) (SABRIL) (VIGABATRIN) (500 MG, TABLET) [Suspect]
     Indication: INFANTILE SPASMS
     Route: 048
     Dates: start: 20120404
  2. SABRIL (TABLET) (SABRIL) (VIGABATRIN) (500 MG, TABLET) [Suspect]
     Indication: INFANTILE SPASMS
     Dosage: AM
     Route: 048
  3. SABRIL (TABLET) (SABRIL) (VIGABATRIN) (500 MG, TABLET) [Suspect]
     Indication: INFANTILE SPASMS
     Dosage: NOON
     Route: 048
  4. SABRIL (TABLET) (SABRIL) (VIGABATRIN) (500 MG, TABLET) [Suspect]
     Indication: INFANTILE SPASMS
     Dosage: PM
     Route: 048

REACTIONS (1)
  - Blindness [None]
